FAERS Safety Report 4713704-8 (Version None)
Quarter: 2005Q3

REPORT INFORMATION
  Report Type: 
  Country: None (occurrence: None)
  Receive Date: 20050712
  Receipt Date: 20050622
  Transmission Date: 20060218
  Serious: Yes (Hospitalization)
  Sender: FDA-Public Use
  Company Number: US_0506119462

PATIENT
  Age: 76 Year
  Sex: Female

DRUGS (4)
  1. TERIPARATIDE [Suspect]
     Indication: OSTEOPOROSIS
     Dosage: 20 UG DAY
     Dates: start: 20040801, end: 20050530
  2. CALCIUM COMPLETE [Concomitant]
  3. MULTI-VITAMIN [Concomitant]
  4. BIOTIN [Concomitant]

REACTIONS (4)
  - ANAEMIA [None]
  - ASTHENIA [None]
  - DIZZINESS [None]
  - HAEMATOCHEZIA [None]
